FAERS Safety Report 12631183 (Version 2)
Quarter: 2016Q3

REPORT INFORMATION
  Report Type: Spontaneous
  Country: US (occurrence: US)
  Receive Date: 20160808
  Receipt Date: 20160808
  Transmission Date: 20161109
  Serious: No
  Sender: FDA-Public Use
  Company Number: US-BEH-2015052617

PATIENT
  Age: 3 Year
  Sex: Male

DRUGS (1)
  1. HIZENTRA [Suspect]
     Active Substance: HUMAN IMMUNOGLOBULIN G
     Indication: PRODUCT USED FOR UNKNOWN INDICATION
     Dates: start: 20150607, end: 20150607

REACTIONS (10)
  - Hypersensitivity [Unknown]
  - Lip swelling [Unknown]
  - Lacrimation increased [Unknown]
  - Urticaria [Unknown]
  - Rash [Unknown]
  - Local swelling [Unknown]
  - Cough [Unknown]
  - Eye swelling [Unknown]
  - Pain [Unknown]
  - Nasal congestion [Unknown]
